FAERS Safety Report 12086432 (Version 1)
Quarter: 2016Q1

REPORT INFORMATION
  Report Type: Spontaneous
  Country: US (occurrence: US)
  Receive Date: 20160217
  Receipt Date: 20160217
  Transmission Date: 20160526
  Serious: No
  Sender: FDA-Public Use
  Company Number: US-ALLERGAN-1500488US

PATIENT
  Sex: Female

DRUGS (8)
  1. LEVOTHYROXINE. [Concomitant]
     Active Substance: LEVOTHYROXINE
     Indication: THYROID DISORDER
     Dosage: UNK
  2. LISINOPRIL. [Concomitant]
     Active Substance: LISINOPRIL
     Indication: BLOOD PRESSURE MEASUREMENT
     Dosage: UNK
  3. HYDROCODONE [Concomitant]
     Active Substance: HYDROCODONE
     Indication: PAIN
     Dosage: UNK
  4. RESTASIS [Suspect]
     Active Substance: CYCLOSPORINE
     Indication: DRY EYE
     Dosage: 2 GTT, ALL DAY LONG
     Route: 047
     Dates: start: 20140102
  5. VITAMIN D [Concomitant]
     Active Substance: CHOLECALCIFEROL
     Dosage: UNK
  6. HYDROXYCHLOROQUINE [Concomitant]
     Active Substance: HYDROXYCHLOROQUINE
     Dosage: UNK
     Dates: start: 1989
  7. RESTASIS [Suspect]
     Active Substance: CYCLOSPORINE
     Dosage: 2 GTT, UNK
     Route: 047
  8. ARTIFICIAL TEARS [Concomitant]
     Active Substance: GLYCERIN\HYPROMELLOSES\POLYETHYLENE GLYCOL 400
     Indication: DRY EYE
     Dosage: UNK
     Route: 047

REACTIONS (14)
  - Incorrect dose administered [Unknown]
  - Eye pain [Unknown]
  - Throat irritation [Unknown]
  - Night blindness [Unknown]
  - Aphonia [Recovered/Resolved]
  - Lacrimation increased [Unknown]
  - Hypersensitivity [Unknown]
  - Dysphonia [Recovered/Resolved]
  - Dysgeusia [Unknown]
  - Eye irritation [Recovered/Resolved]
  - Oropharyngeal pain [Unknown]
  - Pain of skin [Not Recovered/Not Resolved]
  - Skin exfoliation [Unknown]
  - Ocular hyperaemia [Unknown]
